FAERS Safety Report 25575573 (Version 2)
Quarter: 2025Q3

REPORT INFORMATION
  Report Type: Report from Study
  Country: US (occurrence: US)
  Receive Date: 20250718
  Receipt Date: 20250723
  Transmission Date: 20251021
  Serious: Yes (Hospitalization)
  Sender: MERCK SHARP & DOHME LLC
  Company Number: US-009507513-2301934

PATIENT
  Sex: Female
  Weight: 78.9 kg

DRUGS (15)
  1. WINREVAIR [Suspect]
     Active Substance: SOTATERCEPT-CSRK
     Indication: Pulmonary arterial hypertension
     Dosage: 0.5 ML, Q3W
     Route: 058
     Dates: start: 2025
  2. WINREVAIR [Suspect]
     Active Substance: SOTATERCEPT-CSRK
  3. WINREVAIR [Suspect]
     Active Substance: SOTATERCEPT-CSRK
  4. WINREVAIR [Suspect]
     Active Substance: SOTATERCEPT-CSRK
  5. JARDIANCE [Concomitant]
     Active Substance: EMPAGLIFLOZIN
  6. METOLAZONE [Concomitant]
     Active Substance: METOLAZONE
  7. LASIX [Concomitant]
     Active Substance: FUROSEMIDE
  8. PRADAXA [Concomitant]
     Active Substance: DABIGATRAN ETEXILATE MESYLATE
  9. OXYGEN [Concomitant]
     Active Substance: OXYGEN
  10. SIMVASTATIN [Concomitant]
     Active Substance: SIMVASTATIN
  11. SPIRONOLACTONE [Concomitant]
     Active Substance: SPIRONOLACTONE
  12. OMEPRAZOLE [Concomitant]
     Active Substance: OMEPRAZOLE
  13. POTASSIUM CHLORIDE [Concomitant]
     Active Substance: POTASSIUM CHLORIDE
  14. REMODULIN [Suspect]
     Active Substance: TREPROSTINIL
     Indication: Pulmonary arterial hypertension
     Route: 041
     Dates: start: 2025
  15. REMODULIN [Suspect]
     Active Substance: TREPROSTINIL
     Indication: Pulmonary arterial hypertension
     Route: 041
     Dates: start: 20250521

REACTIONS (2)
  - Gastrointestinal infection [Unknown]
  - Brain fog [Unknown]

NARRATIVE: CASE EVENT DATE: 20250101
